FAERS Safety Report 17661756 (Version 1)
Quarter: 2020Q2

REPORT INFORMATION
  Report Type: Spontaneous
  Country: DE (occurrence: DE)
  Receive Date: 20200413
  Receipt Date: 20200413
  Transmission Date: 20200713
  Serious: Yes (Life-Threatening, Other)
  Sender: FDA-Public Use
  Company Number: DE-PFIZER INC-2020149391

PATIENT
  Sex: Female

DRUGS (1)
  1. HALCION [Suspect]
     Active Substance: TRIAZOLAM
     Dosage: UNK
     Dates: start: 202001

REACTIONS (8)
  - Hypoaesthesia [Unknown]
  - Tremor [Unknown]
  - Hallucination [Unknown]
  - Suicidal ideation [Unknown]
  - Delusion [Unknown]
  - Asthenia [Unknown]
  - Burning sensation [Unknown]
  - Hot flush [Unknown]
